FAERS Safety Report 5102051-0 (Version None)
Quarter: 2006Q3

REPORT INFORMATION
  Report Type: 
  Country: None (occurrence: None)
  Receive Date: 20060908
  Receipt Date: 20060829
  Transmission Date: 20061208
  Serious: Yes (Hospitalization, Other)
  Sender: FDA-Public Use
  Company Number: GLIP20060001

PATIENT
  Age: 31 Year
  Sex: Male

DRUGS (1)
  1. GLIPIZIDE [Suspect]
     Indication: DIABETES MELLITUS
     Dosage: 10 MG DAILY PO
     Route: 048

REACTIONS (4)
  - BLOOD GLUCOSE INCREASED [None]
  - DRUG TOXICITY [None]
  - GLYCOSYLATED HAEMOGLOBIN INCREASED [None]
  - STEVENS-JOHNSON SYNDROME [None]
